FAERS Safety Report 23499140 (Version 1)
Quarter: 2024Q1

REPORT INFORMATION
  Report Type: Spontaneous
  Country: RU (occurrence: RU)
  Receive Date: 20240208
  Receipt Date: 20240208
  Transmission Date: 20240409
  Serious: Yes (Other)
  Sender: FDA-Public Use
  Company Number: RU-ABBVIE-5624201

PATIENT
  Age: 10 Year
  Sex: Female
  Weight: 28 kg

DRUGS (4)
  1. SEVOFLURANE [Suspect]
     Active Substance: SEVOFLURANE
     Indication: General anaesthesia
     Dosage: 20 ML
     Route: 055
     Dates: start: 20231205, end: 20231205
  2. Levomycetin (chloramphenicol) [Concomitant]
     Indication: Infection prophylaxis
     Dosage: 0.25 PERCENT
     Dates: start: 20231204, end: 20231213
  3. Atropine (Atropine sulfate) [Concomitant]
     Indication: Premedication
     Dosage: 1 MILLIGRAM/MILLILITERS
     Route: 055
     Dates: start: 20231205, end: 20231205
  4. DEXAMETHASONE [Concomitant]
     Active Substance: DEXAMETHASONE
     Indication: Antiinflammatory therapy
     Dosage: 0.1 PERCENT
     Dates: start: 20231204, end: 20231213

REACTIONS (3)
  - Vomiting [Recovered/Resolved]
  - Nausea [Recovered/Resolved]
  - Asthenia [Recovered/Resolved]

NARRATIVE: CASE EVENT DATE: 20231205
